FAERS Safety Report 20005017 (Version 1)
Quarter: 2021Q4

REPORT INFORMATION
  Report Type: Spontaneous
  Country: US (occurrence: US)
  Receive Date: 20211027
  Receipt Date: 20211027
  Transmission Date: 20220303
  Serious: Yes (Other)
  Sender: FDA-Public Use
  Company Number: US-ALLERGAN-2135997US

PATIENT
  Sex: Female
  Weight: 54.88 kg

DRUGS (5)
  1. BOTOX COSMETIC [Suspect]
     Active Substance: ONABOTULINUMTOXINA
     Indication: Skin wrinkling
     Dosage: UNK, SINGLE
     Dates: start: 20210825, end: 20210825
  2. BOTOX COSMETIC [Suspect]
     Active Substance: ONABOTULINUMTOXINA
     Dosage: 23 UNITS, SINGLE
     Dates: start: 20210302, end: 20210302
  3. JUVEDERM VOLUMA XC [Concomitant]
     Active Substance: HYALURONIC ACID\LIDOCAINE HYDROCHLORIDE
     Dosage: 1 SYRINGE
     Dates: start: 20210302
  4. HYALURONIC ACID [Concomitant]
     Active Substance: HYALURONIC ACID
     Dosage: 1 SYRINGE
     Dates: start: 20210302
  5. RHA4 [Concomitant]
     Dosage: UNK
     Dates: start: 20210825

REACTIONS (4)
  - Hypertension [Not Recovered/Not Resolved]
  - Ocular discomfort [Recovered/Resolved]
  - Eye oedema [Recovered/Resolved]
  - Vertigo positional [Recovering/Resolving]

NARRATIVE: CASE EVENT DATE: 20210902
